FAERS Safety Report 11531173 (Version 2)
Quarter: 2015Q3

REPORT INFORMATION
  Report Type: Spontaneous
  Country: IL (occurrence: IL)
  Receive Date: 20150921
  Receipt Date: 20150923
  Transmission Date: 20151125
  Serious: Yes (Other)
  Sender: FDA-Public Use
  Company Number: IL-FRESENIUS KABI-FK201504398

PATIENT
  Age: 81 Year
  Sex: Female

DRUGS (6)
  1. CLONIDINE. [Concomitant]
     Active Substance: CLONIDINE
  2. AZITHROMYCIN [Concomitant]
     Active Substance: AZITHROMYCIN ANHYDROUS
  3. INSULIN MIXTARD [Concomitant]
  4. SIMVASTATIN. [Concomitant]
     Active Substance: SIMVASTATIN
  5. CEFTRIAXONE. [Concomitant]
     Active Substance: CEFTRIAXONE
  6. ISOTONIC SODIUM CHLORIDE 0.9% (MANUFACTURER UNKNOWN) [Suspect]
     Active Substance: SODIUM CHLORIDE
     Indication: ACUTE KIDNEY INJURY
     Route: 042

REACTIONS (6)
  - Hypertension [Recovered/Resolved]
  - Tachypnoea [None]
  - Infusion related reaction [None]
  - Rales [None]
  - Blood urea increased [None]
  - Blood creatinine increased [None]
